APPROVED DRUG PRODUCT: NAPROXEN SODIUM
Active Ingredient: NAPROXEN SODIUM
Strength: 220MG
Dosage Form/Route: TABLET;ORAL
Application: A075168 | Product #001
Applicant: DR REDDYS LABORATORIES INC
Approved: Jul 28, 1998 | RLD: No | RS: No | Type: OTC